FAERS Safety Report 21740716 (Version 4)
Quarter: 2023Q1

REPORT INFORMATION
  Report Type: Spontaneous
  Country: IT (occurrence: IT)
  Receive Date: 20221216
  Receipt Date: 20230119
  Transmission Date: 20230418
  Serious: Yes (Death)
  Sender: FDA-Public Use
  Company Number: IT-ALXN-A202215602

PATIENT
  Age: 88 Year
  Sex: Female

DRUGS (2)
  1. ULTOMIRIS [Suspect]
     Active Substance: RAVULIZUMAB-CWVZ
     Dosage: 3300 MG, UNK
     Route: 065
     Dates: start: 20220316
  2. ULTOMIRIS [Suspect]
     Active Substance: RAVULIZUMAB-CWVZ
     Indication: Product used for unknown indication
     Dosage: 2700 MG, UNK
     Route: 065
     Dates: start: 20220302, end: 20221026

REACTIONS (2)
  - Decreased appetite [Fatal]
  - Vomiting [Unknown]
